FAERS Safety Report 4500537-0 (Version None)
Quarter: 2004Q4

REPORT INFORMATION
  Report Type: 
  Country: None (occurrence: None)
  Receive Date: 20041110
  Receipt Date: 20041029
  Transmission Date: 20050328
  Serious: Yes (Hospitalization)
  Sender: FDA-Public Use
  Company Number: HQWYE671430JUL04

PATIENT
  Age: 67 Year
  Sex: Female
  Weight: 91.6 kg

DRUGS (8)
  1. CYCLOSPORINE [Suspect]
     Indication: PROPHYLAXIS AGAINST TRANSPLANT REJECTION
     Dosage: ORAL
     Route: 048
     Dates: start: 19980501, end: 20040728
  2. CYCLOSPORINE [Suspect]
     Dosage: 75MG IN THE MORNING, 50MG IN THE EVENING, ORAL
     Route: 048
     Dates: start: 20040701
  3. CELLCEPT [Concomitant]
  4. PREDNISONE [Concomitant]
  5. NORVASC [Concomitant]
  6. CLONIDINE [Concomitant]
  7. MIACALCIN (CLONIDINE, SALMON) [Concomitant]
  8. MULTIVITAMINS, PLAIN (MULTIVITAMINS, PLAIN) [Concomitant]

REACTIONS (6)
  - CHILLS [None]
  - CHOLESTASIS [None]
  - DRUG INEFFECTIVE [None]
  - HEPATOTOXICITY [None]
  - LIVER TRANSPLANT REJECTION [None]
  - VOMITING [None]
